FAERS Safety Report 25378328 (Version 1)
Quarter: 2025Q2

REPORT INFORMATION
  Report Type: Report from Study
  Country: US (occurrence: US)
  Receive Date: 20250530
  Receipt Date: 20250530
  Transmission Date: 20250717
  Serious: No
  Sender: SUNOVION
  Company Number: US-SUMITOMO PHARMA SWITZERLAND GMBH-2025SPA005702

PATIENT

DRUGS (7)
  1. ORGOVYX [Suspect]
     Active Substance: RELUGOLIX
     Indication: Prostate cancer
     Dosage: 120 MG, QD
     Route: 048
     Dates: start: 20250315
  2. METFORMIN [Concomitant]
     Active Substance: METFORMIN HYDROCHLORIDE
     Route: 065
  3. VALSARTAN [Concomitant]
     Active Substance: VALSARTAN
     Route: 065
  4. AMLODIPINE BESYLATE [Concomitant]
     Active Substance: AMLODIPINE BESYLATE
     Route: 065
  5. TIRZEPATIDE [Concomitant]
     Active Substance: TIRZEPATIDE
     Route: 065
  6. VITAMINS [Concomitant]
     Active Substance: VITAMINS
     Route: 065
  7. OZEMPIC [Concomitant]
     Active Substance: SEMAGLUTIDE
     Route: 065

REACTIONS (1)
  - Hot flush [Unknown]
